FAERS Safety Report 10632098 (Version 1)
Quarter: 2014Q4

REPORT INFORMATION
  Report Type: Spontaneous
  Country: US (occurrence: None)
  Receive Date: 20141203
  Receipt Date: 20141203
  Transmission Date: 20150529
  Serious: Yes (Other)
  Sender: FDA-Public Use
  Company Number: None

PATIENT
  Age: 54 Year
  Sex: Male

DRUGS (1)
  1. STRIBILD [Suspect]
     Active Substance: COBICISTAT\ELVITEGRAVIR\EMTRICITABINE\TENOFOVIR DISOPROXIL FUMARATE
     Dosage: FREQUENCY: ONE DAILY, DOSE FORM: ORAL, ROUTE: ORAL 047
     Route: 048
     Dates: start: 20140521

REACTIONS (1)
  - Myalgia [None]

NARRATIVE: CASE EVENT DATE: 20141201
